FAERS Safety Report 6862787-8 (Version None)
Quarter: 2010Q3

REPORT INFORMATION
  Report Type: 
  Country: None (occurrence: None)
  Receive Date: 20100721
  Receipt Date: 20100714
  Transmission Date: 20110219
  Serious: Yes (Other)
  Sender: FDA-Public Use
  Company Number: US-BAYER-201018006BCC

PATIENT
  Age: 18 Year
  Sex: Female
  Weight: 48 kg

DRUGS (2)
  1. ASPIRIN [Suspect]
     Indication: PRODUCT USED FOR UNKNOWN INDICATION
     Dosage: TOTAL DAILY DOSE: 14950 MG  UNIT DOSE: 325 MG
     Route: 048
     Dates: start: 20100714
  2. BICARBONATE FLUIDS [Concomitant]
     Dosage: 200 AN HOUR
     Route: 042
     Dates: start: 20100714

REACTIONS (7)
  - BLOOD PRESSURE ABNORMAL [None]
  - DIZZINESS [None]
  - HYPERHIDROSIS [None]
  - NAUSEA [None]
  - SINUS TACHYCARDIA [None]
  - TINNITUS [None]
  - VOMITING [None]
